FAERS Safety Report 9053985 (Version 2)
Quarter: 2013Q2

REPORT INFORMATION
  Report Type: Spontaneous
  Country: AU (occurrence: AU)
  Receive Date: 20130208
  Receipt Date: 20130522
  Transmission Date: 20140414
  Serious: Yes (Death, Hospitalization, Other)
  Sender: FDA-Public Use
  Company Number: AU-B.I. PHARMACEUTICALS,INC./RIDGEFIELD-2013-AU-00094AU

PATIENT
  Age: 70 Year
  Sex: Male
  Weight: 102 kg

DRUGS (5)
  1. PRADAXA [Suspect]
     Indication: CEREBROVASCULAR ACCIDENT PROPHYLAXIS
     Dosage: 300 MG
     Dates: start: 20110628, end: 201209
  2. PRADAXA [Suspect]
     Indication: ATRIAL FIBRILLATION
  3. AVAPRO [Concomitant]
  4. NOTEN [Concomitant]
  5. NSAID [Concomitant]

REACTIONS (5)
  - Clostridium difficile infection [Fatal]
  - Colitis [Fatal]
  - Sepsis [Fatal]
  - Melaena [Fatal]
  - Renal failure [Unknown]
